FAERS Safety Report 7298004-7 (Version None)
Quarter: 2011Q1

REPORT INFORMATION
  Report Type: 
  Country: None (occurrence: None)
  Receive Date: 20110217
  Receipt Date: 20110215
  Transmission Date: 20110831
  Serious: No
  Sender: FDA-Public Use
  Company Number: US-PFIZER INC-2011033722

PATIENT
  Sex: Male
  Weight: 82 kg

DRUGS (2)
  1. ADVIL [Suspect]
     Indication: NASOPHARYNGITIS
     Dosage: UNK, DAILY
     Route: 048
     Dates: start: 20110214, end: 20110215
  2. ADVIL [Suspect]
     Indication: NASAL CONGESTION

REACTIONS (2)
  - INSOMNIA [None]
  - RESTLESSNESS [None]
